FAERS Safety Report 22604293 (Version 5)
Quarter: 2024Q1

REPORT INFORMATION
  Report Type: Report from Study
  Country: US (occurrence: US)
  Receive Date: 20230615
  Receipt Date: 20240207
  Transmission Date: 20240409
  Serious: Yes (Hospitalization, Other)
  Sender: FDA-Public Use
  Company Number: US-002147023-NVSC2023US136306

PATIENT
  Sex: Female

DRUGS (2)
  1. KISQALI [Suspect]
     Active Substance: RIBOCICLIB
     Indication: Breast cancer
     Dosage: 600 MG, QD
     Route: 048
     Dates: start: 20230523
  2. KISQALI [Suspect]
     Active Substance: RIBOCICLIB
     Dosage: 400 MG, QD
     Route: 048

REACTIONS (16)
  - Constipation [Unknown]
  - Breast cancer [Unknown]
  - Dehydration [Recovering/Resolving]
  - Faeces hard [Unknown]
  - Nasal dryness [Unknown]
  - Visual impairment [Unknown]
  - Dry eye [Unknown]
  - Oropharyngeal pain [Unknown]
  - Headache [Unknown]
  - Dry mouth [Unknown]
  - Fatigue [Unknown]
  - Feeling jittery [Unknown]
  - Laboratory test abnormal [Unknown]
  - Nausea [Unknown]
  - Feeling abnormal [Unknown]
  - Drug ineffective [Unknown]
